FAERS Safety Report 13821619 (Version 2)
Quarter: 2018Q1

REPORT INFORMATION
  Report Type: Spontaneous
  Country: US (occurrence: US)
  Receive Date: 20170801
  Receipt Date: 20180206
  Transmission Date: 20180508
  Serious: Yes (Other)
  Sender: FDA-Public Use
  Company Number: PHEH2017US023396

PATIENT
  Sex: Female

DRUGS (1)
  1. DUREZOL [Suspect]
     Active Substance: DIFLUPREDNATE
     Indication: CORNEAL INFECTION
     Route: 047

REACTIONS (5)
  - Glaucoma [Unknown]
  - Dry eye [Unknown]
  - Corneal epithelial microcysts [Unknown]
  - Product use in unapproved indication [Unknown]
  - Foreign body sensation in eyes [Unknown]
